FAERS Safety Report 24760202 (Version 1)
Quarter: 2024Q4

REPORT INFORMATION
  Report Type: Spontaneous
  Country: US (occurrence: US)
  Receive Date: 20241220
  Receipt Date: 20241220
  Transmission Date: 20250114
  Serious: Yes (Hospitalization)
  Sender: DR REDDYS
  Company Number: None

PATIENT
  Age: 38 Year
  Sex: Male

DRUGS (4)
  1. AMIODARONE [Suspect]
     Active Substance: AMIODARONE
     Indication: Dilated cardiomyopathy
  2. AMIODARONE [Suspect]
     Active Substance: AMIODARONE
     Indication: Ventricular tachycardia
  3. MEXILETINE [Concomitant]
     Active Substance: MEXILETINE
     Indication: Dilated cardiomyopathy
  4. MEXILETINE [Concomitant]
     Active Substance: MEXILETINE
     Indication: Ventricular tachycardia

REACTIONS (2)
  - Hyperthyroidism [Recovering/Resolving]
  - Arrhythmic storm [Unknown]
